FAERS Safety Report 19325662 (Version 2)
Quarter: 2021Q2

REPORT INFORMATION
  Report Type: Spontaneous
  Country: US (occurrence: US)
  Receive Date: 20210528
  Receipt Date: 20210623
  Transmission Date: 20210717
  Serious: No
  Sender: FDA-Public Use
  Company Number: US-BAYER-2021-147709

PATIENT
  Sex: Female
  Weight: 56.69 kg

DRUGS (2)
  1. NEXAVAR [Suspect]
     Active Substance: SORAFENIB
     Dosage: UNK
     Dates: start: 202105
  2. LENVIMA [Suspect]
     Active Substance: LENVATINIB
     Indication: THYROID CANCER
     Dosage: DAILY DOSE 10 MG
     Route: 048
     Dates: start: 20201119

REACTIONS (8)
  - Pain of skin [Not Recovered/Not Resolved]
  - Pruritus [Not Recovered/Not Resolved]
  - Erythema [None]
  - Decreased appetite [Unknown]
  - Rash macular [Not Recovered/Not Resolved]
  - Flushing [Unknown]
  - Rash [Not Recovered/Not Resolved]
  - Dysphonia [Unknown]
